FAERS Safety Report 9708971 (Version 5)
Quarter: 2014Q2

REPORT INFORMATION
  Report Type: Spontaneous
  Country: US (occurrence: US)
  Receive Date: 20131125
  Receipt Date: 20140418
  Transmission Date: 20141212
  Serious: No
  Sender: FDA-Public Use
  Company Number: US-GILEAD-2013-0087000

PATIENT
  Sex: Female

DRUGS (4)
  1. LETAIRIS [Suspect]
     Indication: PULMONARY ARTERIAL HYPERTENSION
     Dosage: 10 MG, QD
     Route: 065
     Dates: start: 20120625
  2. REMODULIN [Suspect]
     Indication: PRODUCT USED FOR UNKNOWN INDICATION
     Dosage: UNK
     Route: 042
  3. ADCIRCA [Concomitant]
  4. COUMADIN                           /00014802/ [Concomitant]

REACTIONS (7)
  - Catheter site inflammation [Unknown]
  - Pain [Unknown]
  - Injection site discharge [Unknown]
  - Infusion site inflammation [Unknown]
  - Local swelling [Unknown]
  - Infusion site hypersensitivity [Unknown]
  - Infusion site scab [Unknown]
